FAERS Safety Report 4983555-8 (Version None)
Quarter: 2006Q2

REPORT INFORMATION
  Report Type: 
  Country: None (occurrence: None)
  Receive Date: 20060426
  Receipt Date: 20060419
  Transmission Date: 20061013
  Serious: Yes (Death, Other)
  Sender: FDA-Public Use
  Company Number: US-JNJFOC-20060304364

PATIENT
  Sex: Male
  Weight: 63.96 kg

DRUGS (7)
  1. FENTANYL [Suspect]
     Indication: DRUG USE FOR UNKNOWN INDICATION
  2. TRAMADOL HCL [Suspect]
     Indication: DRUG USE FOR UNKNOWN INDICATION
  3. MORPHINE [Suspect]
     Indication: DRUG USE FOR UNKNOWN INDICATION
  4. TETRAHYDROCANNABINOL [Suspect]
     Indication: DRUG USE FOR UNKNOWN INDICATION
  5. COCAINE [Suspect]
     Indication: DRUG USE FOR UNKNOWN INDICATION
  6. HYDROMORPHONE HCL [Suspect]
     Indication: DRUG USE FOR UNKNOWN INDICATION
  7. HYDROCODONE BITARTRATE [Suspect]
     Indication: DRUG USE FOR UNKNOWN INDICATION

REACTIONS (6)
  - CARDIAC ARREST [None]
  - DRUG ABUSER [None]
  - DRUG TOXICITY [None]
  - LIVEDO RETICULARIS [None]
  - LOSS OF CONSCIOUSNESS [None]
  - OVERDOSE [None]
